FAERS Safety Report 5025176-7 (Version None)
Quarter: 2006Q2

REPORT INFORMATION
  Report Type: 
  Country: None (occurrence: None)
  Receive Date: 20060613
  Receipt Date: 20060608
  Transmission Date: 20061013
  Serious: Yes (Hospitalization)
  Sender: FDA-Public Use
  Company Number: BR-GLAXOSMITHKLINE-A0608545A

PATIENT
  Age: 4 Year
  Sex: Male
  Weight: 30 kg

DRUGS (4)
  1. CLAVULIN [Suspect]
     Indication: PNEUMONIA
     Dosage: 7ML TWICE PER DAY
     Route: 048
     Dates: start: 20060523, end: 20060531
  2. IVY EXTRACT [Concomitant]
     Dosage: 7.5ML THREE TIMES PER DAY
     Dates: start: 20060523, end: 20060531
  3. BEROTEC [Concomitant]
     Dates: start: 20060523
  4. ATROVENT [Concomitant]
     Dates: start: 20060523

REACTIONS (3)
  - DRUG INEFFECTIVE [None]
  - PHARMACEUTICAL PRODUCT COMPLAINT [None]
  - PYREXIA [None]
